FAERS Safety Report 24768946 (Version 1)
Quarter: 2024Q4

REPORT INFORMATION
  Report Type: Spontaneous
  Country: US (occurrence: US)
  Receive Date: 20241224
  Receipt Date: 20241224
  Transmission Date: 20250114
  Serious: No
  Sender: STALLERGENES
  Company Number: US-AIMMUNE THERAPEUTICS, INC.-2024AIMT01107

PATIENT
  Age: 10 Year
  Sex: Male

DRUGS (8)
  1. PALFORZIA [Suspect]
     Active Substance: PEANUT
     Indication: Food allergy
     Dosage: IDE (0.5-6MG), ONCE
     Dates: start: 20240508, end: 20240508
  2. PALFORZIA [Suspect]
     Active Substance: PEANUT
     Dosage: 20 MG, 1X/DAY
     Dates: start: 20240618, end: 20240629
  3. PALFORZIA [Suspect]
     Active Substance: PEANUT
     Dosage: 20 MG, ONCE, LAST DOSE PRIOR TO EVENTS
     Dates: start: 202406, end: 202406
  4. PALFORZIA [Suspect]
     Active Substance: PEANUT
     Dosage: 12 MG, 1X/DAY, DOSE DECREASED
     Dates: start: 20240701, end: 20240715
  5. PALFORZIA [Suspect]
     Active Substance: PEANUT
     Dosage: 12 MG, ONCE, LAST DOSE PRIOR TO EVENTS
     Dates: start: 202407, end: 202407
  6. PALFORZIA [Suspect]
     Active Substance: PEANUT
     Dosage: 20 MG, 1X/DAY, RESUMED
     Dates: start: 20240715
  7. PALFORZIA [Suspect]
     Active Substance: PEANUT
     Dosage: 40 MG, 1X/DAY
     Dates: start: 20240729
  8. PALFORZIA [Suspect]
     Active Substance: PEANUT
     Dosage: 80 MG, 1X/DAY
     Dates: start: 20240819

REACTIONS (3)
  - Vomiting [Recovered/Resolved]
  - Nausea [Recovered/Resolved]
  - Product dose omission issue [Recovered/Resolved]

NARRATIVE: CASE EVENT DATE: 20240601
